FAERS Safety Report 9226871 (Version 2)
Quarter: 2013Q2

REPORT INFORMATION
  Report Type: Spontaneous
  Country: US (occurrence: US)
  Receive Date: 20130412
  Receipt Date: 20130501
  Transmission Date: 20140414
  Serious: No
  Sender: FDA-Public Use
  Company Number: US-PFIZER INC-2013113844

PATIENT
  Age: 82 Year
  Sex: Female
  Weight: 71.66 kg

DRUGS (5)
  1. AMLODIPINE BESILATE [Suspect]
     Dosage: 5 MG, 2X/DAY
     Route: 048
  2. ASPIRIN [Concomitant]
     Dosage: UNK, 1X/DAY
  3. RANITIDINE [Concomitant]
     Indication: GASTROOESOPHAGEAL REFLUX DISEASE
     Dosage: 150 MG, 2X/DAY
  4. NAPROXEN [Concomitant]
     Indication: BACK PAIN
     Dosage: 500 MG, AS NEEDED
  5. TYLENOL W/CODEINE NO. 3 [Concomitant]
     Dosage: UNK, AS NEEDED

REACTIONS (3)
  - Off label use [Unknown]
  - Abdominal pain upper [Unknown]
  - Malaise [Unknown]
